FAERS Safety Report 5760771-9 (Version None)
Quarter: 2008Q2

REPORT INFORMATION
  Report Type: 
  Country: None (occurrence: None)
  Receive Date: 20080606
  Receipt Date: 20080528
  Transmission Date: 20081010
  Serious: Yes (Other)
  Sender: FDA-Public Use
  Company Number: GB-JNJFOC-20080600020

PATIENT
  Sex: Female

DRUGS (2)
  1. PREZISTA [Suspect]
     Indication: DRUG USE FOR UNKNOWN INDICATION
     Route: 048
  2. RITONAVIR [Concomitant]

REACTIONS (1)
  - LOSS OF CONSCIOUSNESS [None]
